FAERS Safety Report 4753540-X (Version None)
Quarter: 2005Q3

REPORT INFORMATION
  Report Type: 
  Country: None (occurrence: None)
  Receive Date: 20050826
  Receipt Date: 20050620
  Transmission Date: 20060218
  Serious: Yes (Hospitalization)
  Sender: FDA-Public Use
  Company Number: 200511831JP

PATIENT
  Age: 65 Year
  Sex: Male
  Weight: 66.7 kg

DRUGS (6)
  1. ALLEGRA [Suspect]
     Indication: RHINITIS ALLERGIC
     Route: 048
     Dates: start: 20050603, end: 20050620
  2. ADEROXAL [Concomitant]
     Indication: NERVE INJURY
     Route: 048
  3. THYRADIN S [Concomitant]
     Indication: THYROID DISORDER
     Route: 048
  4. DECADRON [Concomitant]
     Indication: MULTIPLE MYELOMA
     Route: 048
  5. FOSAMAC TABLETS [Concomitant]
     Indication: OSTEOPOROSIS
     Route: 048
  6. LASIX [Concomitant]
     Indication: OEDEMA
     Route: 048

REACTIONS (2)
  - CONDITION AGGRAVATED [None]
  - PLATELET COUNT DECREASED [None]
